FAERS Safety Report 5340754-3 (Version None)
Quarter: 2007Q2

REPORT INFORMATION
  Report Type: 
  Country: None (occurrence: None)
  Receive Date: 20070531
  Receipt Date: 20070518
  Transmission Date: 20071010
  Serious: Yes (Hospitalization)
  Sender: FDA-Public Use
  Company Number: US-SHR-US-2007-017728

PATIENT
  Age: 58 Year
  Sex: Female

DRUGS (6)
  1. BETASERON [Suspect]
     Dosage: 8 MIU, EVERY 2D
     Route: 058
     Dates: start: 20060525
  2. SINGULAIR [Concomitant]
  3. ALBUTEROL [Concomitant]
     Dosage: UNK, AS REQ'D
  4. ADVAIR DISKUS 100/50 [Concomitant]
  5. NEXIUM [Concomitant]
  6. SOLU-MEDROL [Concomitant]

REACTIONS (3)
  - MUSCLE SPASMS [None]
  - OEDEMA PERIPHERAL [None]
  - PALPITATIONS [None]
